FAERS Safety Report 20587732 (Version 1)
Quarter: 2022Q1

REPORT INFORMATION
  Report Type: Spontaneous
  Country: US (occurrence: US)
  Receive Date: 20220314
  Receipt Date: 20220314
  Transmission Date: 20220424
  Serious: No
  Sender: FDA-Public Use
  Company Number: US-NOVARTISTESTPH-NVSC2022US058403

PATIENT

DRUGS (1)
  1. ALPELISIB [Suspect]
     Active Substance: ALPELISIB
     Indication: Product used for unknown indication
     Dosage: UNK (00.00 MG)
     Route: 065

REACTIONS (5)
  - Abdominal discomfort [Unknown]
  - Weight decreased [Unknown]
  - Heart rate increased [Unknown]
  - Pruritus [Unknown]
  - Blood glucose increased [Unknown]
